FAERS Safety Report 4351393-5 (Version None)
Quarter: 2004Q2

REPORT INFORMATION
  Report Type: 
  Country: None (occurrence: None)
  Receive Date: 20040430
  Receipt Date: 20040430
  Transmission Date: 20050107
  Serious: No
  Sender: FDA-Public Use
  Company Number: None

PATIENT
  Age: 46 Year
  Sex: Female
  Weight: 68 kg

DRUGS (3)
  1. AZITHROMYCIN [Suspect]
     Indication: PNEUMONIA
     Dosage: 500 MG Q24H IV
     Route: 042
     Dates: start: 20040423, end: 20040424
  2. AZITHROMYCIN [Suspect]
     Indication: UPPER RESPIRATORY TRACT INFECTION
     Dosage: 500 MG Q24H IV
     Route: 042
     Dates: start: 20040423, end: 20040424
  3. MESTINON [Suspect]
     Indication: MYASTHENIA GRAVIS
     Dosage: 180 MG Q3H ORAL
     Route: 048
     Dates: start: 19950101, end: 20040424

REACTIONS (7)
  - CONDITION AGGRAVATED [None]
  - DRUG INTERACTION [None]
  - DYSPHAGIA [None]
  - DYSPNOEA [None]
  - MYASTHENIA GRAVIS [None]
  - RESPIRATORY DISORDER [None]
  - SPEECH DISORDER [None]
